FAERS Safety Report 8329604-0 (Version None)
Quarter: 2012Q2

REPORT INFORMATION
  Report Type: 
  Country: None (occurrence: None)
  Receive Date: 20120502
  Receipt Date: 20120430
  Transmission Date: 20120825
  Serious: Yes (Hospitalization, Other)
  Sender: FDA-Public Use
  Company Number: PHFR2012IE002176

PATIENT
  Sex: Female

DRUGS (3)
  1. CLOZARIL [Suspect]
     Indication: SCHIZOPHRENIA
     Route: 048
     Dates: start: 20120322
  2. PSYCHOTROPICS [Concomitant]
  3. CLOZARIL [Suspect]
     Dosage: UNK UKN, UNK
     Route: 048
     Dates: start: 20120417, end: 20120427

REACTIONS (6)
  - CONFUSIONAL STATE [None]
  - BODY TEMPERATURE INCREASED [None]
  - MONOCYTE COUNT INCREASED [None]
  - NEUROLEPTIC MALIGNANT SYNDROME [None]
  - DIFFERENTIAL WHITE BLOOD CELL COUNT ABNORMAL [None]
  - URINARY TRACT INFECTION [None]
